FAERS Safety Report 6634070-7 (Version None)
Quarter: 2010Q1

REPORT INFORMATION
  Report Type: 
  Country: None (occurrence: None)
  Receive Date: 20100310
  Receipt Date: 20100302
  Transmission Date: 20100710
  Serious: Yes (Other)
  Sender: FDA-Public Use
  Company Number: 2010SP013247

PATIENT
  Sex: Male

DRUGS (2)
  1. REBETOL [Suspect]
     Indication: HEPATITIS C
     Dosage: ; PO
     Route: 048
  2. FERON (INTERFERON) [Suspect]
     Indication: HEPATITIS C
     Dosage: ; IV
     Route: 042

REACTIONS (1)
  - ULCERATIVE KERATITIS [None]
